FAERS Safety Report 8116407-5 (Version None)
Quarter: 2012Q1

REPORT INFORMATION
  Report Type: 
  Country: None (occurrence: None)
  Receive Date: 20120119
  Receipt Date: 20120110
  Transmission Date: 20120608
  Serious: No
  Sender: FDA-Public Use
  Company Number: 2011029202

PATIENT
  Age: 28 Year
  Sex: Female
  Weight: 72.5755 kg

DRUGS (20)
  1. HIZENTRA [Suspect]
  2. ALBUTEROL [Concomitant]
  3. ZETIA [Concomitant]
  4. HIZENTRA [Suspect]
  5. DEMEROL [Concomitant]
  6. HIZENTRA [Suspect]
  7. OVCON (NORMENSAL) [Concomitant]
  8. PROAIR HFA (SALBUTAMOL) [Concomitant]
  9. ZYRTEC [Concomitant]
  10. CLINDAMYCIN [Concomitant]
  11. ACETAMINOPHEN [Concomitant]
  12. HIZENTRA [Suspect]
  13. BUSPAR [Concomitant]
  14. SINGULAIR [Concomitant]
  15. AMITRIPTYLINE HCL [Concomitant]
  16. PROMETHAZINE [Concomitant]
  17. HIZENTRA [Suspect]
     Indication: IMMUNODEFICIENCY COMMON VARIABLE
     Dosage: SEE IMAGE
     Route: 058
     Dates: start: 20110127
  18. HIZENTRA [Suspect]
     Indication: IMMUNODEFICIENCY COMMON VARIABLE
     Dosage: SEE IMAGE
     Route: 058
     Dates: start: 20110617, end: 20110617
  19. HIZENTRA [Suspect]
     Indication: IMMUNODEFICIENCY COMMON VARIABLE
     Dosage: SEE IMAGE
     Route: 058
     Dates: start: 20120104
  20. VITAMIN D [Concomitant]

REACTIONS (5)
  - HEADACHE [None]
  - SINUSITIS [None]
  - INFUSION SITE ERYTHEMA [None]
  - MIGRAINE [None]
  - INFUSION SITE PRURITUS [None]
